FAERS Safety Report 5016453-4 (Version None)
Quarter: 2006Q2

REPORT INFORMATION
  Report Type: 
  Country: None (occurrence: None)
  Receive Date: 20060531
  Receipt Date: 20060531
  Transmission Date: 20061013
  Serious: Yes (Other)
  Sender: FDA-Public Use
  Company Number: None

PATIENT
  Age: 62 Year
  Sex: Male
  Weight: 124 kg

DRUGS (1)
  1. VENLAFAXINE HCL [Suspect]
     Indication: AFFECTIVE DISORDER
     Dosage: 150 MG QD AM PO
     Route: 048

REACTIONS (1)
  - ABNORMAL DREAMS [None]
